FAERS Safety Report 10088241 (Version 1)
Quarter: 2014Q2

REPORT INFORMATION
  Report Type: Spontaneous
  Country: DE (occurrence: DE)
  Receive Date: 20140421
  Receipt Date: 20140421
  Transmission Date: 20141212
  Serious: Yes (Hospitalization)
  Sender: FDA-Public Use
  Company Number: DE-BIOGENIDEC-2014BI034912

PATIENT
  Age: 37 Year
  Sex: Female

DRUGS (2)
  1. TECFIDERA [Suspect]
     Indication: MULTIPLE SCLEROSIS
     Route: 048
     Dates: start: 20140318
  2. TECFIDERA [Suspect]
     Indication: MULTIPLE SCLEROSIS
     Route: 048
     Dates: start: 2014

REACTIONS (3)
  - Gastritis [Not Recovered/Not Resolved]
  - Loss of consciousness [Recovered/Resolved]
  - Flushing [Recovered/Resolved]
